FAERS Safety Report 6848355-2 (Version None)
Quarter: 2010Q3

REPORT INFORMATION
  Report Type: 
  Country: None (occurrence: None)
  Receive Date: 20100716
  Receipt Date: 20100701
  Transmission Date: 20110219
  Serious: Yes (Other)
  Sender: FDA-Public Use
  Company Number: US-ROCHE-714252

PATIENT

DRUGS (8)
  1. BEVACIZUMAB [Suspect]
     Indication: NON-SMALL CELL LUNG CANCER
     Dosage: INTRAVENOUS OVER 30-90 MIN ON DAY 1
     Route: 042
     Dates: start: 20090613
  2. BEVACIZUMAB [Suspect]
     Dosage: AFTER 4 CYCLES, INTRAVENOUS OVER 30-90 MINUTES ON DAY 1 PER 3 WEEK.
     Route: 042
  3. GEMCITABINE HCL [Suspect]
     Indication: NON-SMALL CELL LUNG CANCER
     Dosage: INTRAVENOUS OVER 30 MINUTES ON DAYS 1 AND 8.
     Route: 042
     Dates: start: 20090713
  4. CISPLATIN [Suspect]
     Indication: NON-SMALL CELL LUNG CANCER
     Dosage: INTRAEVNOUS OVER 60 MINUTES ON DAY 1.
     Route: 042
     Dates: start: 20090713
  5. CARBATROL [Suspect]
     Indication: PRODUCT USED FOR UNKNOWN INDICATION
     Route: 065
  6. PHENYTEK [Suspect]
     Indication: PRODUCT USED FOR UNKNOWN INDICATION
     Route: 065
  7. TEMAZEPAM [Suspect]
     Indication: PRODUCT USED FOR UNKNOWN INDICATION
     Route: 065
  8. MG [Suspect]
     Indication: PRODUCT USED FOR UNKNOWN INDICATION
     Route: 065

REACTIONS (2)
  - ASTHENIA [None]
  - ATAXIA [None]
